FAERS Safety Report 11706601 (Version 1)
Quarter: 2015Q4

REPORT INFORMATION
  Report Type: Spontaneous
  Country: US (occurrence: US)
  Receive Date: 20151106
  Receipt Date: 20151106
  Transmission Date: 20160304
  Serious: No
  Sender: FDA-Public Use
  Company Number: US-JNJFOC-20151105372

PATIENT
  Age: 43 Year
  Sex: Female
  Weight: 99.79 kg

DRUGS (2)
  1. DURAGESIC [Suspect]
     Active Substance: FENTANYL
     Indication: CYSTITIS INTERSTITIAL
     Route: 062
  2. DIAZEPAM. [Concomitant]
     Active Substance: DIAZEPAM
     Indication: CYSTITIS INTERSTITIAL
     Route: 048

REACTIONS (2)
  - Drug dose omission [Recovered/Resolved]
  - Drug prescribing error [Unknown]

NARRATIVE: CASE EVENT DATE: 201509
